FAERS Safety Report 8432955-2 (Version None)
Quarter: 2012Q2

REPORT INFORMATION
  Report Type: 
  Country: None (occurrence: None)
  Receive Date: 20120613
  Receipt Date: 20120604
  Transmission Date: 20120825
  Serious: Yes (Hospitalization, Other)
  Sender: FDA-Public Use
  Company Number: JP-ASTRAZENECA-2012SE33930

PATIENT
  Age: 23135 Day
  Sex: Male

DRUGS (9)
  1. PROTECADIN [Concomitant]
     Indication: GASTRITIS PROPHYLAXIS
     Route: 048
  2. ENALAPRIL MALEATE [Concomitant]
     Indication: CARDIOVASCULAR EVENT PROPHYLAXIS
     Route: 048
     Dates: end: 20120521
  3. ASPIRIN [Concomitant]
     Route: 048
     Dates: end: 20120522
  4. LOXONIN PAP [Concomitant]
     Indication: BACK PAIN
     Route: 050
     Dates: start: 20120507, end: 20120520
  5. AZD6140 [Suspect]
     Indication: CORONARY ARTERY DISEASE
     Route: 048
     Dates: start: 20111114, end: 20120522
  6. SITAGLIPTIN PHOSPHATE [Concomitant]
     Indication: TYPE 2 DIABETES MELLITUS
     Route: 048
     Dates: end: 20120523
  7. LIVALO [Concomitant]
     Indication: HYPERLIPIDAEMIA
     Route: 048
     Dates: end: 20120525
  8. VESICARE OD [Concomitant]
     Indication: BENIGN PROSTATIC HYPERPLASIA
     Route: 048
     Dates: start: 20120507
  9. LENDORMIN D [Concomitant]
     Indication: INSOMNIA
     Route: 048
     Dates: start: 20120507, end: 20120520

REACTIONS (1)
  - SMALL CELL LUNG CANCER METASTATIC [None]
